FAERS Safety Report 9544630 (Version 1)
Quarter: 2013Q3

REPORT INFORMATION
  Report Type: Spontaneous
  Country: US (occurrence: US)
  Receive Date: 20130923
  Receipt Date: 20130923
  Transmission Date: 20140515
  Serious: No
  Sender: FDA-Public Use
  Company Number: US-GLAXOSMITHKLINE-A0996371A

PATIENT
  Age: 47 Year
  Sex: Female

DRUGS (2)
  1. ABREVA [Suspect]
     Indication: ORAL HERPES
     Route: 061
  2. BACTRIM [Concomitant]
     Route: 061

REACTIONS (6)
  - Application site burn [Not Recovered/Not Resolved]
  - Application site erythema [Not Recovered/Not Resolved]
  - Application site scar [Not Recovered/Not Resolved]
  - Application site pain [Recovered/Resolved with Sequelae]
  - Oral herpes [Recovered/Resolved with Sequelae]
  - Drug administration error [Unknown]
